FAERS Safety Report 8943389 (Version 1)
Quarter: 2012Q4

REPORT INFORMATION
  Report Type: 
  Country: CL (occurrence: CL)
  Receive Date: 20121204
  Receipt Date: 20121204
  Transmission Date: 20130627
  Serious: Yes (Hospitalization, Other)
  Sender: FDA-Public Use
  Company Number: CL-ROXANE LABORATORIES, INC.-2012-RO-02471RO

PATIENT
  Age: 6 Year
  Sex: Female

DRUGS (1)
  1. OXCARBAZEPINE [Suspect]
     Indication: EPILEPSY
     Dates: start: 200812

REACTIONS (3)
  - Septic shock [Unknown]
  - Pneumonia haemophilus [Unknown]
  - Hypogammaglobulinaemia [Recovered/Resolved]
